FAERS Safety Report 24727140 (Version 5)
Quarter: 2025Q4

REPORT INFORMATION
  Report Type: Spontaneous
  Country: JP (occurrence: JP)
  Receive Date: 20241212
  Receipt Date: 20251221
  Transmission Date: 20260118
  Serious: Yes (Disabling, Other)
  Sender: ABBVIE
  Company Number: JP-ABBVIE-6042987

PATIENT
  Age: 43 Year
  Sex: Female

DRUGS (4)
  1. RINVOQ [Suspect]
     Active Substance: UPADACITINIB
     Indication: Psoriatic arthropathy
     Dosage: FORM STRENGTH: 15 MILLIGRAM
     Route: 048
     Dates: start: 202312, end: 202406
  2. CELECOXIB [Suspect]
     Active Substance: CELECOXIB
     Indication: Psoriatic arthropathy
     Dosage: 200 MILLIGRAM
     Route: 048
     Dates: start: 20231115, end: 20240417
  3. SULFASALAZINE [Concomitant]
     Active Substance: SULFASALAZINE
     Indication: Product used for unknown indication
  4. REBAMIPIDE [Suspect]
     Active Substance: REBAMIPIDE
     Indication: Gastrointestinal disorder prophylaxis
     Dosage: 200 MILLIGRAM
     Route: 048
     Dates: start: 20231115, end: 20241023

REACTIONS (6)
  - Grip strength decreased [Recovered/Resolved]
  - Movement disorder [Recovered/Resolved]
  - Arthralgia [Recovering/Resolving]
  - Pain in extremity [Unknown]
  - Myalgia [Unknown]
  - Gait disturbance [Recovered/Resolved]

NARRATIVE: CASE EVENT DATE: 20240401
